FAERS Safety Report 19259140 (Version 1)
Quarter: 2021Q2

REPORT INFORMATION
  Report Type: Spontaneous
  Country: US (occurrence: US)
  Receive Date: 20210514
  Receipt Date: 20210514
  Transmission Date: 20210717
  Serious: Yes (Other)
  Sender: FDA-Public Use
  Company Number: None

PATIENT
  Sex: Female

DRUGS (3)
  1. AMBRISENTAN [Concomitant]
     Active Substance: AMBRISENTAN
     Indication: PULMONARY ARTERIAL HYPERTENSION
     Route: 048
  2. NITRO?BID [Suspect]
     Active Substance: NITROGLYCERIN
  3. TADALAFIL. [Suspect]
     Active Substance: TADALAFIL

REACTIONS (2)
  - Product distribution issue [None]
  - Drug interaction [None]
